FAERS Safety Report 6101623-4 (Version None)
Quarter: 2009Q2

REPORT INFORMATION
  Report Type: 
  Country: None (occurrence: None)
  Receive Date: 20090303
  Receipt Date: 20090303
  Transmission Date: 20091009
  Serious: Yes (Other)
  Sender: FDA-Public Use
  Company Number: None

PATIENT
  Age: 47 Year
  Sex: Female
  Weight: 71.6683 kg

DRUGS (2)
  1. TRANSDERM SCOP [Suspect]
     Indication: MOTION SICKNESS
     Dosage: 1.5 MG 7 DAYS CONSTANTLY CUTANEOUS
     Route: 003
     Dates: start: 20090215, end: 20090222
  2. TRANSDERM SCOP [Suspect]
     Indication: MOTION SICKNESS
     Dosage: 1.5 MG 7 DAYS CONSTANTLY CUTANEOUS
     Route: 003
     Dates: start: 20090225, end: 20090226

REACTIONS (7)
  - ABASIA [None]
  - DEHYDRATION [None]
  - DIZZINESS [None]
  - DRUG WITHDRAWAL SYNDROME [None]
  - FATIGUE [None]
  - NAUSEA [None]
  - VOMITING [None]
